FAERS Safety Report 17442205 (Version 3)
Quarter: 2020Q2

REPORT INFORMATION
  Report Type: Spontaneous
  Country: US (occurrence: US)
  Receive Date: 20200220
  Receipt Date: 20200408
  Transmission Date: 20200713
  Serious: No
  Sender: FDA-Public Use
  Company Number: US-PFIZER INC-2020077347

PATIENT

DRUGS (1)
  1. DICLOFENAC EPOLAMINE [Suspect]
     Active Substance: DICLOFENAC EPOLAMINE
     Indication: PLANTAR FASCIITIS
     Dosage: UNK
     Route: 061

REACTIONS (4)
  - Product adhesion issue [Unknown]
  - Blister [Recovered/Resolved]
  - Drug ineffective [Unknown]
  - Poor quality product administered [Unknown]
